FAERS Safety Report 5707095-3 (Version None)
Quarter: 2008Q2

REPORT INFORMATION
  Report Type: 
  Country: None (occurrence: None)
  Receive Date: 20080416
  Receipt Date: 20080407
  Transmission Date: 20081010
  Serious: Yes (Hospitalization, Other)
  Sender: FDA-Public Use
  Company Number: FR-JNJFOC-20080205357

PATIENT
  Age: 44 Year
  Sex: Male
  Weight: 105 kg

DRUGS (9)
  1. REMICADE [Suspect]
     Route: 042
  2. REMICADE [Suspect]
     Route: 042
  3. REMICADE [Suspect]
     Route: 042
  4. REMICADE [Suspect]
     Route: 042
  5. REMICADE [Suspect]
     Route: 042
  6. REMICADE [Suspect]
     Indication: PSORIATIC ARTHROPATHY
     Route: 042
  7. NOVATREX [Suspect]
     Indication: PSORIATIC ARTHROPATHY
  8. DIAMICRON [Concomitant]
     Indication: DIABETES MELLITUS
  9. FENOFIBRATE [Concomitant]
     Indication: HYPERCHOLESTEROLAEMIA

REACTIONS (1)
  - LYMPH NODE TUBERCULOSIS [None]
